APPROVED DRUG PRODUCT: TORSEMIDE
Active Ingredient: TORSEMIDE
Strength: 20MG/2ML (10MG/ML)
Dosage Form/Route: SOLUTION;INTRAVENOUS
Application: A090656 | Product #001
Applicant: AMERICAN REGENT INC
Approved: Apr 21, 2010 | RLD: No | RS: No | Type: DISCN